FAERS Safety Report 19132911 (Version 1)
Quarter: 2021Q2

REPORT INFORMATION
  Report Type: Spontaneous
  Country: GB (occurrence: GB)
  Receive Date: 20210413
  Receipt Date: 20210413
  Transmission Date: 20210717
  Serious: Yes (Congenital Anomaly)
  Sender: FDA-Public Use
  Company Number: XI-INSUD PHARMA-2103XI00427

PATIENT

DRUGS (5)
  1. SALBUTAMOL [Suspect]
     Active Substance: ALBUTEROL
     Dosage: PRN
     Route: 064
  2. COSENTYX [Suspect]
     Active Substance: SECUKINUMAB
     Dosage: COSENTYX 300 MG WEEKLY
     Route: 064
     Dates: start: 20200609, end: 202007
  3. FOLIC ACID. [Suspect]
     Active Substance: FOLIC ACID
     Dosage: 5 MG DAILY
     Route: 064
  4. LANSOPRAZOLE. [Suspect]
     Active Substance: LANSOPRAZOLE
     Indication: PRODUCT USED FOR UNKNOWN INDICATION
     Dosage: 30 MILLIGRAM, QD
     Route: 064
  5. COSENTYX [Suspect]
     Active Substance: SECUKINUMAB
     Dosage: 300 MG ONCE A MONTH
     Route: 064
     Dates: start: 202007, end: 20200923

REACTIONS (1)
  - Anencephaly [Not Recovered/Not Resolved]
